FAERS Safety Report 20432262 (Version 1)
Quarter: 2022Q1

REPORT INFORMATION
  Report Type: Spontaneous
  Country: US (occurrence: None)
  Receive Date: 20220204
  Receipt Date: 20220204
  Transmission Date: 20220423
  Serious: Yes (Hospitalization)
  Sender: FDA-Public Use
  Company Number: None

PATIENT
  Age: 35 Year
  Sex: Female
  Weight: 70.2 kg

DRUGS (4)
  1. CYCLOPHOSPHAMIDE [Suspect]
     Active Substance: CYCLOPHOSPHAMIDE
     Dates: end: 20220117
  2. CYTARABINE [Suspect]
     Active Substance: CYTARABINE
     Dosage: OTHER QUANTITY : 1092.8MG;?
     Dates: end: 20220127
  3. METHOTREXATE [Suspect]
     Active Substance: METHOTREXATE
     Dates: end: 20220124
  4. THIOGUANINE ANHYDROUS [Suspect]
     Active Substance: THIOGUANINE ANHYDROUS
     Dates: end: 20220130

REACTIONS (12)
  - Faeces discoloured [None]
  - Feeling abnormal [None]
  - Hypotension [None]
  - Sepsis [None]
  - Blood lactic acid decreased [None]
  - Thrombocytopenia [None]
  - Giant papillary conjunctivitis [None]
  - Bacterial infection [None]
  - Streptococcus test positive [None]
  - Klebsiella test positive [None]
  - Respiratory failure [None]
  - Vascular device infection [None]

NARRATIVE: CASE EVENT DATE: 20220131
